FAERS Safety Report 22759326 (Version 2)
Quarter: 2024Q4

REPORT INFORMATION
  Report Type: Spontaneous
  Country: ES (occurrence: ES)
  Receive Date: 20230728
  Receipt Date: 20241105
  Transmission Date: 20250115
  Serious: Yes (Life-Threatening, Hospitalization)
  Sender: NOVO NORDISK
  Company Number: None

PATIENT
  Age: 37 Year
  Sex: Female
  Weight: 115 kg

DRUGS (9)
  1. RYBELSUS [Suspect]
     Active Substance: SEMAGLUTIDE
     Indication: Obesity
     Dosage: 3 MG, QD
     Route: 048
     Dates: start: 20230702, end: 20230708
  2. RYBELSUS [Suspect]
     Active Substance: SEMAGLUTIDE
     Indication: Off label use
  3. ACOMICIL [Concomitant]
     Dosage: 100 MG, QD(1 TABLET AT DINNER (PRESCRIBED BY A PRIVATE PSYCHIATRIST)
     Dates: start: 2019
  4. LORMETAZEPAM [Concomitant]
     Active Substance: LORMETAZEPAM
     Indication: Insomnia
     Dosage: 1 MG, 24 AS NECESSARY(1 TABLET AT BEDTIME IF NEEDED)
  5. CLORAZEPATE DIPOTASSIUM [Concomitant]
     Active Substance: CLORAZEPATE DIPOTASSIUM
     Indication: Personality disorder
     Dosage: 15 MG, BID
     Dates: start: 2023
  6. SERTRALINE HYDROCHLORIDE [Concomitant]
     Active Substance: SERTRALINE HYDROCHLORIDE
     Indication: Personality disorder
     Dosage: 200 MG, QD(SERTRALINA 100 MG : 2-0-0)
  7. BUPROPION HYDROCHLORIDE [Concomitant]
     Active Substance: BUPROPION HYDROCHLORIDE
     Indication: Personality disorder
     Dosage: 150 MG (1-0-0)
     Dates: start: 2023
  8. ENOXAPARIN [Concomitant]
     Active Substance: ENOXAPARIN
     Indication: Deep vein thrombosis
     Dosage: 150 IU, QD
     Dates: start: 20240307
  9. TRAMADOL [Concomitant]
     Active Substance: TRAMADOL
     Dosage: 100 MG, BID

REACTIONS (3)
  - Starvation ketoacidosis [Not Recovered/Not Resolved]
  - Vomiting [Not Recovered/Not Resolved]
  - Off label use [Recovered/Resolved]

NARRATIVE: CASE EVENT DATE: 20230702
